FAERS Safety Report 14531020 (Version 1)
Quarter: 2018Q1

REPORT INFORMATION
  Report Type: Report from Study
  Country: BR (occurrence: BR)
  Receive Date: 20180214
  Receipt Date: 20180214
  Transmission Date: 20180509
  Serious: Yes (Other)
  Sender: FDA-Public Use
  Company Number: PHHY2018BR008750

PATIENT
  Age: 64 Year
  Sex: Female
  Weight: 49 kg

DRUGS (1)
  1. ACLASTA [Suspect]
     Active Substance: ZOLEDRONIC ACID
     Indication: OSTEOPOROSIS
     Dosage: 1 DF (5MG/ 100 ML), Q12MO
     Route: 042

REACTIONS (4)
  - Haematoma [Recovered/Resolved]
  - Vein rupture [Unknown]
  - Rhinitis allergic [Unknown]
  - Poor venous access [Unknown]

NARRATIVE: CASE EVENT DATE: 201712
